FAERS Safety Report 8788422 (Version 1)
Quarter: 2012Q4

REPORT INFORMATION
  Report Type: Report from Study
  Country: US (occurrence: US)
  Receive Date: 20120914
  Receipt Date: 20120914
  Transmission Date: 20130627
  Serious: No
  Sender: FDA-Public Use
  Company Number: US-VERTEX PHARMACEUTICAL INC.-AE-2012-011260

PATIENT
  Age: 55 Year
  Sex: Female
  Weight: 100.91 kg

DRUGS (10)
  1. INCIVEK [Suspect]
     Indication: HEPATITIS C
     Route: 048
     Dates: start: 2012
  2. PEGASYS [Concomitant]
     Indication: HEPATITIS C
     Dates: start: 2012
  3. RIBASPHERE [Concomitant]
     Indication: HEPATITIS C
     Dates: start: 2012
  4. LUMIGAN SOL [Concomitant]
  5. NADOLOL [Concomitant]
  6. PREVACAID [Concomitant]
  7. ALIVE 50+ TAB WOMENS [Concomitant]
  8. PROCRIT [Concomitant]
  9. CORTIZONE-10 CRE 1% [Concomitant]
  10. ESTROVEN PM [Concomitant]

REACTIONS (8)
  - Depression [Unknown]
  - Decreased appetite [Unknown]
  - Fatigue [Unknown]
  - Haemoglobin decreased [Unknown]
  - Haemorrhoids [Unknown]
  - Haematochezia [Unknown]
  - Anorectal discomfort [Unknown]
  - Anal pruritus [Unknown]
